FAERS Safety Report 7452938-9 (Version None)
Quarter: 2011Q2

REPORT INFORMATION
  Report Type: 
  Country: None (occurrence: None)
  Receive Date: 20110502
  Receipt Date: 20101210
  Transmission Date: 20111010
  Serious: Yes (Hospitalization, Other)
  Sender: FDA-Public Use
  Company Number: US-BAYER-201027058NA

PATIENT
  Age: 42 Year
  Sex: Female
  Weight: 72.562 kg

DRUGS (1)
  1. YAZ [Suspect]
     Indication: MENSTRUATION IRREGULAR
     Dosage: UNK UNK, QD
     Route: 048
     Dates: start: 20080901, end: 20090415

REACTIONS (8)
  - DYSARTHRIA [None]
  - HEMIPARESIS [None]
  - PARAESTHESIA [None]
  - CEREBROVASCULAR ACCIDENT [None]
  - HYPOAESTHESIA [None]
  - ANXIETY [None]
  - HEADACHE [None]
  - CEREBRAL VENOUS THROMBOSIS [None]
